FAERS Safety Report 8006335-8 (Version None)
Quarter: 2011Q4

REPORT INFORMATION
  Report Type: 
  Country: None (occurrence: None)
  Receive Date: 20111226
  Receipt Date: 20111221
  Transmission Date: 20120403
  Serious: Yes (Other)
  Sender: FDA-Public Use
  Company Number: PHHY2011PT111521

PATIENT
  Sex: Female

DRUGS (3)
  1. EXJADE [Suspect]
     Dosage: 200 MG, DAILY
     Dates: start: 20111018, end: 20111018
  2. FOLIC ACID [Concomitant]
     Indication: CONGENITAL ANAEMIA
     Dosage: 1.25 MG DAILY
     Route: 048
  3. EXJADE [Suspect]
     Indication: HAEMOSIDEROSIS
     Dosage: 250 MG, DAILY
     Dates: start: 20110913, end: 20110913

REACTIONS (5)
  - LIP OEDEMA [None]
  - CYANOSIS [None]
  - ANURIA [None]
  - EYELID OEDEMA [None]
  - ERYTHEMA [None]
